FAERS Safety Report 10233254 (Version 2)
Quarter: 2014Q2

REPORT INFORMATION
  Report Type: Spontaneous
  Country: DK (occurrence: DK)
  Receive Date: 20140612
  Receipt Date: 20140612
  Transmission Date: 20141212
  Serious: Yes (Disabling)
  Sender: FDA-Public Use
  Company Number: PHHY2014DK063759

PATIENT
  Sex: Female

DRUGS (7)
  1. EPIRUBICIN [Suspect]
     Indication: CHEMOTHERAPY
     Dosage: 180 MG, UNK
     Dates: start: 20101215, end: 20110228
  2. EPIRUBICIN [Suspect]
     Dosage: 170 MG, UNK
     Dates: start: 20110117
  3. EPIRUBICIN [Suspect]
     Dosage: 100 MG, UNK
  4. SENDOXAN [Suspect]
     Indication: CHEMOTHERAPY
     Dosage: 1200 MG, UNK
     Dates: start: 20101215, end: 20110228
  5. SENDOXAN [Suspect]
     Dosage: 1100 MG, UNK
     Dates: start: 20110117
  6. SENDOXAN [Suspect]
     Dosage: 780 MG, UNK
  7. TAXOTERE [Suspect]
     Indication: CHEMOTHERAPY
     Dosage: 120 MG, UNK
     Dates: start: 2011

REACTIONS (2)
  - Anosmia [Not Recovered/Not Resolved]
  - Ageusia [Not Recovered/Not Resolved]
